FAERS Safety Report 22119571 (Version 1)
Quarter: 2023Q1

REPORT INFORMATION
  Report Type: Spontaneous
  Country: GB (occurrence: GB)
  Receive Date: 20230321
  Receipt Date: 20230321
  Transmission Date: 20230417
  Serious: Yes (Hospitalization, Other)
  Sender: FDA-Public Use
  Company Number: GB-MHRA-MED-202303151448358200-ZVCSK

PATIENT
  Age: 64 Year
  Sex: Female

DRUGS (9)
  1. NAPROXEN [Suspect]
     Active Substance: NAPROXEN
     Indication: Migraine
     Dosage: 250 MILLIGRAM, TID (250MG THREE TIMES A DAY)
     Route: 065
     Dates: start: 20230309, end: 20230313
  2. ATORVASTATIN [Concomitant]
     Active Substance: ATORVASTATIN
     Dosage: UNK
     Route: 065
  3. BACLOFEN [Concomitant]
     Active Substance: BACLOFEN
     Indication: Muscle spasticity
     Dosage: UNK
     Route: 065
  4. BISACODYL [Concomitant]
     Active Substance: BISACODYL
     Indication: Constipation
     Dosage: UNK
     Route: 065
  5. FEXOFENADINE [Concomitant]
     Active Substance: FEXOFENADINE HYDROCHLORIDE
     Dosage: UNK
     Route: 065
  6. FUROSEMIDE [Concomitant]
     Active Substance: FUROSEMIDE
     Dosage: UNK
     Route: 065
  7. NIFEDIPINE [Concomitant]
     Active Substance: NIFEDIPINE
     Indication: Autonomic dysreflexia
     Dosage: UNK
     Route: 065
  8. PREGABALIN [Concomitant]
     Active Substance: PREGABALIN
     Dosage: UNK
     Route: 065
  9. SENNA [Concomitant]
     Active Substance: SENNA LEAF\SENNOSIDES\SENNOSIDES A AND B
     Dosage: UNK
     Route: 065

REACTIONS (1)
  - Hallucination [Recovered/Resolved]

NARRATIVE: CASE EVENT DATE: 20230313
